FAERS Safety Report 22353158 (Version 1)
Quarter: 2023Q2

REPORT INFORMATION
  Report Type: Spontaneous
  Country: US (occurrence: US)
  Receive Date: 20230523
  Receipt Date: 20230523
  Transmission Date: 20230721
  Serious: No
  Sender: FDA-Public Use
  Company Number: US-AMGEN-USASP2023084342

PATIENT
  Age: 54 Year
  Sex: Female

DRUGS (34)
  1. OTEZLA [Suspect]
     Active Substance: APREMILAST
     Indication: Psoriasis
     Dosage: 30 MILLIGRAM, BID
     Route: 048
     Dates: start: 2020
  2. AIMOVIG [Suspect]
     Active Substance: ERENUMAB-AOOE
     Indication: Product used for unknown indication
     Dosage: UNK
     Route: 065
  3. PROLIA [Suspect]
     Active Substance: DENOSUMAB
     Indication: Product used for unknown indication
     Route: 065
  4. ACETAMINOPHEN [Concomitant]
     Active Substance: ACETAMINOPHEN
  5. ALBUTEROL SULFATE [Concomitant]
     Active Substance: ALBUTEROL SULFATE
  6. AMLODIPINE [Concomitant]
     Active Substance: AMLODIPINE BESYLATE
  7. ASPIRIN [Concomitant]
     Active Substance: ASPIRIN
  8. AZELASTINE [Concomitant]
     Active Substance: AZELASTINE
  9. AZITHROMYCIN [Concomitant]
     Active Substance: AZITHROMYCIN
  10. BENZONATATE [Concomitant]
     Active Substance: BENZONATATE
  11. CALCIPOTRIENE [Concomitant]
     Active Substance: CALCIPOTRIENE
  12. CITALOPRAM [Concomitant]
     Active Substance: CITALOPRAM HYDROBROMIDE
  13. CLOBETASOL [Concomitant]
     Active Substance: CLOBETASOL
  14. CYCLOBENZAPRINE [Concomitant]
     Active Substance: CYCLOBENZAPRINE
  15. DOCUSATE [Concomitant]
     Active Substance: DOCUSATE
  16. FLUTICASONE [Concomitant]
     Active Substance: FLUTICASONE
  17. FLUVOXAMINE [Concomitant]
     Active Substance: FLUVOXAMINE
  18. GALANTAMINE [Concomitant]
     Active Substance: GALANTAMINE
  19. HYDROXYZINE [Concomitant]
     Active Substance: HYDROXYZINE HYDROCHLORIDE
  20. JARDIANCE [Concomitant]
     Active Substance: EMPAGLIFLOZIN
  21. KETOCONAZOLE [Concomitant]
     Active Substance: KETOCONAZOLE
  22. LANTUS SOLOSTAR [Concomitant]
     Active Substance: INSULIN GLARGINE
  23. LEVOCETIRIZINE [Concomitant]
     Active Substance: LEVOCETIRIZINE
  24. LEVOTHYROXINE [Concomitant]
     Active Substance: LEVOTHYROXINE
  25. LOSARTAN [Concomitant]
     Active Substance: LOSARTAN
  26. MEMANTINE [Concomitant]
     Active Substance: MEMANTINE
  27. METFORMIN [Concomitant]
     Active Substance: METFORMIN HYDROCHLORIDE
  28. MONTELUKAST [Concomitant]
     Active Substance: MONTELUKAST SODIUM
  29. NAPROXEN [Concomitant]
     Active Substance: NAPROXEN
  30. PREGABALIN [Concomitant]
     Active Substance: PREGABALIN
  31. PREVIDENT [Concomitant]
     Active Substance: SODIUM FLUORIDE
  32. PRIMIDONE [Concomitant]
     Active Substance: PRIMIDONE
  33. QUETIAPINE [Concomitant]
     Active Substance: QUETIAPINE
  34. ROPINIROLE [Concomitant]
     Active Substance: ROPINIROLE

REACTIONS (1)
  - Urinary tract infection [Not Recovered/Not Resolved]

NARRATIVE: CASE EVENT DATE: 20230511
